FAERS Safety Report 5062469-1 (Version None)
Quarter: 2006Q3

REPORT INFORMATION
  Report Type: 
  Country: None (occurrence: None)
  Receive Date: 20060721
  Receipt Date: 20060630
  Transmission Date: 20061208
  Serious: Yes (Hospitalization)
  Sender: FDA-Public Use
  Company Number: 2006RR-02913

PATIENT
  Age: 69 Year
  Sex: Male

DRUGS (1)
  1. SIMVASTATIN [Suspect]
     Indication: HYPERCHOLESTEROLAEMIA
     Dosage: 20 MG, QD, ORAL
     Route: 048

REACTIONS (8)
  - ASTHENIA [None]
  - BACK PAIN [None]
  - CHYLOTHORAX [None]
  - COUGH [None]
  - DYSPNOEA EXERTIONAL [None]
  - INFLAMMATION [None]
  - PLEURAL EFFUSION [None]
  - PLEURISY [None]
